FAERS Safety Report 6700078-6 (Version None)
Quarter: 2010Q2

REPORT INFORMATION
  Report Type: 
  Country: None (occurrence: None)
  Receive Date: 20100428
  Receipt Date: 20100419
  Transmission Date: 20101027
  Serious: Yes (Hospitalization, Other)
  Sender: FDA-Public Use
  Company Number: US-BAYER-201014387BCC

PATIENT
  Age: 61 Year
  Sex: Male
  Weight: 91 kg

DRUGS (16)
  1. ASPIRIN [Suspect]
     Indication: DRUG USE FOR UNKNOWN INDICATION
     Dosage: TOTAL DAILY DOSE: 325 MG  UNIT DOSE: 325 MG
     Route: 048
     Dates: start: 20100401
  2. ASPIRIN [Suspect]
     Dosage: TOTAL DAILY DOSE: 81 MG  UNIT DOSE: 81 MG
     Route: 065
     Dates: start: 20090328, end: 20100325
  3. EPLERENONE OR PLACEBO [Suspect]
     Indication: CARDIAC FAILURE CONGESTIVE
     Route: 065
     Dates: start: 20090612
  4. PLAVIX [Suspect]
     Indication: DRUG USE FOR UNKNOWN INDICATION
     Dosage: TOTAL DAILY DOSE: 75 MG  UNIT DOSE: 75 MG
     Route: 048
     Dates: start: 20090328, end: 20100325
  5. PLAVIX [Suspect]
     Dosage: TOTAL DAILY DOSE: 150 MG  UNIT DOSE: 150 MG
     Route: 048
     Dates: start: 20100401
  6. METOPROLOL [Concomitant]
     Route: 065
     Dates: start: 20090328
  7. LEVOTHYROXINE [Concomitant]
     Route: 065
     Dates: start: 20090328
  8. ZOCOR [Concomitant]
     Route: 065
     Dates: start: 20090328
  9. CYCLOBENZAPRINE [Concomitant]
     Route: 065
     Dates: start: 20090328
  10. LASIX [Concomitant]
     Route: 065
     Dates: start: 20090328
  11. LISINOPRIL [Concomitant]
     Route: 065
     Dates: start: 20090328
  12. MOTRIN [Concomitant]
     Route: 065
     Dates: start: 20090303
  13. NIACIN [Concomitant]
     Route: 065
     Dates: start: 20100101
  14. TEMAZEPAM [Concomitant]
     Route: 065
     Dates: start: 20090521
  15. BACTRIN DS [Concomitant]
     Dosage: TOTAL DAILY DOSE: 2 DF  UNIT DOSE: 1 DF
     Route: 065
     Dates: start: 20100210, end: 20100216
  16. BACTRIN DS [Concomitant]
     Dosage: TOTAL DAILY DOSE: 2 DF  UNIT DOSE: 1 DF
     Route: 065
     Dates: start: 20100225, end: 20100303

REACTIONS (3)
  - ACUTE MYOCARDIAL INFARCTION [None]
  - CHEST DISCOMFORT [None]
  - TROPONIN T INCREASED [None]
